FAERS Safety Report 7093280-8 (Version None)
Quarter: 2010Q4

REPORT INFORMATION
  Report Type: 
  Country: None (occurrence: None)
  Receive Date: 20101110
  Receipt Date: 20101105
  Transmission Date: 20110411
  Serious: Yes (Death, Life-Threatening, Hospitalization)
  Sender: FDA-Public Use
  Company Number: JP-CELGENEUS-087-21880-10091046

PATIENT
  Age: 38 Year
  Sex: Male

DRUGS (26)
  1. REVLIMID [Suspect]
     Indication: MULTIPLE MYELOMA
     Route: 048
     Dates: start: 20100720, end: 20100730
  2. ALBUMIN TANNATE [Concomitant]
     Route: 048
     Dates: start: 20100721, end: 20100726
  3. GASCON [Concomitant]
     Route: 048
     Dates: start: 20100724, end: 20100726
  4. HICALIQ [Concomitant]
     Route: 041
     Dates: start: 20100622, end: 20100814
  5. VITAJECT [Concomitant]
     Route: 041
     Dates: start: 20100622, end: 20100814
  6. NEOAMIYU [Concomitant]
     Route: 041
     Dates: start: 20100622, end: 20100814
  7. SOLITAX-H [Concomitant]
     Route: 041
     Dates: start: 20100629, end: 20100722
  8. VEEN D [Concomitant]
     Route: 041
     Dates: start: 20100720, end: 20100814
  9. ADONA [Concomitant]
     Indication: INFECTION
     Route: 051
     Dates: start: 20100714, end: 20100721
  10. FINIBAX [Concomitant]
     Indication: INFECTION
     Route: 041
     Dates: start: 20100720, end: 20100721
  11. FINIBAX [Concomitant]
     Route: 041
     Dates: start: 20100728, end: 20100802
  12. FIRSTCIN [Concomitant]
     Indication: INFECTION
     Route: 041
     Dates: start: 20100716, end: 20100720
  13. DENOSINE [Concomitant]
     Indication: INFECTION
     Route: 041
     Dates: start: 20100716, end: 20100721
  14. ATARAX [Concomitant]
     Route: 041
     Dates: start: 20100614, end: 20100814
  15. PENTAZOCINE LACTATE [Concomitant]
     Route: 030
     Dates: start: 20100713, end: 20100722
  16. SPORAMIN [Concomitant]
     Route: 041
     Dates: start: 20100704, end: 20100723
  17. PRIMPERAN [Concomitant]
     Route: 051
     Dates: start: 20100706, end: 20100811
  18. SOLITA-T3 [Concomitant]
     Route: 041
     Dates: start: 20100723, end: 20100730
  19. LEPETAN [Concomitant]
     Route: 041
     Dates: start: 20100726, end: 20100814
  20. TAKEPRON [Concomitant]
     Indication: PROPHYLAXIS
     Route: 048
     Dates: start: 20100604, end: 20100727
  21. LENDORMIN [Concomitant]
     Route: 048
     Dates: start: 20100409, end: 20100811
  22. VANCOMYCIN [Concomitant]
     Indication: INFECTION
     Route: 065
     Dates: start: 20100812, end: 20100813
  23. SERENACE [Concomitant]
     Indication: MULTIPLE MYELOMA
     Route: 041
     Dates: start: 20100731, end: 20100814
  24. MEROPEN [Concomitant]
     Indication: INFECTION
     Route: 041
     Dates: start: 20100803, end: 20100811
  25. ADOME [Concomitant]
     Indication: INFECTION
     Route: 051
     Dates: start: 20100729, end: 20100805
  26. OXYGEN [Concomitant]
     Route: 055
     Dates: start: 20100725, end: 20100814

REACTIONS (5)
  - AMYLOIDOSIS [None]
  - HEPATIC FUNCTION ABNORMAL [None]
  - ILEUS PARALYTIC [None]
  - NEUTROPENIA [None]
  - THROMBOCYTOPENIA [None]
